FAERS Safety Report 19471917 (Version 1)
Quarter: 2021Q2

REPORT INFORMATION
  Report Type: Spontaneous
  Country: US (occurrence: US)
  Receive Date: 20210629
  Receipt Date: 20210629
  Transmission Date: 20210717
  Serious: No
  Sender: FDA-Public Use
  Company Number: None

PATIENT
  Age: 24 Year
  Sex: Female

DRUGS (1)
  1. DALFAMPRIDINE ER TAB 10MG [Suspect]
     Active Substance: DALFAMPRIDINE
     Route: 048
     Dates: start: 2019

REACTIONS (6)
  - Dyspnoea [None]
  - Feeling abnormal [None]
  - Movement disorder [None]
  - Muscle tightness [None]
  - Anxiety [None]
  - Incorrect dose administered [None]

NARRATIVE: CASE EVENT DATE: 20210628
